FAERS Safety Report 19486908 (Version 1)
Quarter: 2021Q3

REPORT INFORMATION
  Report Type: Spontaneous
  Country: KR (occurrence: KR)
  Receive Date: 20210702
  Receipt Date: 20210702
  Transmission Date: 20211014
  Serious: Yes (Hospitalization, Other)
  Sender: FDA-Public Use
  Company Number: KR-SUN PHARMACEUTICAL INDUSTRIES LTD-2021R1-301868

PATIENT
  Age: 32 Year
  Sex: Female

DRUGS (7)
  1. CLONAZEPAM. [Suspect]
     Active Substance: CLONAZEPAM
     Indication: HALLUCINATION, AUDITORY
  2. ARIPIPRAZOLE. [Suspect]
     Active Substance: ARIPIPRAZOLE
     Indication: HALLUCINATION, AUDITORY
     Dosage: 2 MILLIGRAM
     Route: 065
  3. CLOZAPINE. [Suspect]
     Active Substance: CLOZAPINE
     Indication: HALLUCINATION, AUDITORY
     Dosage: 300 MILLIGRAM
     Route: 065
  4. ESCITALOPRAM [Suspect]
     Active Substance: ESCITALOPRAM OXALATE
     Indication: HALLUCINATION, AUDITORY
  5. CLONAZEPAM. [Suspect]
     Active Substance: CLONAZEPAM
     Indication: HALLUCINATION, AUDITORY
     Dosage: 0.5 MILLIGRAM
     Route: 065
  6. ESCITALOPRAM [Suspect]
     Active Substance: ESCITALOPRAM OXALATE
     Indication: HALLUCINATION, AUDITORY
     Dosage: 10 MILLIGRAM
     Route: 065
  7. CLOZAPINE. [Suspect]
     Active Substance: CLOZAPINE
     Dosage: MORE THAN 400 MILLIGRAM/UNK
     Route: 065

REACTIONS (1)
  - Treatment failure [Unknown]
